FAERS Safety Report 7985379-6 (Version None)
Quarter: 2011Q4

REPORT INFORMATION
  Report Type: 
  Country: None (occurrence: None)
  Receive Date: 20111216
  Receipt Date: 20111207
  Transmission Date: 20120403
  Serious: Yes (Other)
  Sender: FDA-Public Use
  Company Number: US-CELGENEUS-163-50794-11121373

PATIENT
  Sex: Female
  Weight: 75.591 kg

DRUGS (1)
  1. VIDAZA [Suspect]
     Dosage: 135 MILLIGRAM
     Route: 041
     Dates: start: 20111103

REACTIONS (1)
  - THROMBOCYTOSIS [None]
